FAERS Safety Report 8222713-6 (Version None)
Quarter: 2012Q1

REPORT INFORMATION
  Report Type: 
  Country: None (occurrence: None)
  Receive Date: 20120315
  Receipt Date: 20120302
  Transmission Date: 20120608
  Serious: Yes (Other)
  Sender: FDA-Public Use
  Company Number: BR-1190380

PATIENT
  Age: 28 Year
  Sex: Male
  Weight: 110.9 kg

DRUGS (3)
  1. PREDNISOLONE ACETATE [Suspect]
     Indication: POSTOPERATIVE CARE
     Dosage: 1 GTT Q4H OS OPHTHALMIC
     Route: 047
     Dates: start: 20110329, end: 20110929
  2. VIGAMOX [Suspect]
     Indication: SUTURE REMOVAL
     Dosage: 1 GTT QID OS OPHTHALMIC, 1 GTT BID OPHTHALMIC
     Route: 047
     Dates: start: 20110329, end: 20110408
  3. VIGAMOX [Suspect]
     Indication: SUTURE REMOVAL
     Dosage: 1 GTT QID OS OPHTHALMIC, 1 GTT BID OPHTHALMIC
     Route: 047
     Dates: start: 20110329, end: 20110408

REACTIONS (3)
  - ERYTHEMA OF EYELID [None]
  - EYE PRURITUS [None]
  - CATARACT SUBCAPSULAR [None]
